FAERS Safety Report 4535286-6 (Version None)
Quarter: 2004Q4

REPORT INFORMATION
  Report Type: 
  Country: None (occurrence: None)
  Receive Date: 20041214
  Receipt Date: 20040921
  Transmission Date: 20050328
  Serious: No
  Sender: FDA-Public Use
  Company Number: 2004237137US

PATIENT
  Age: 41 Year
  Sex: Male
  Weight: 94.3 kg

DRUGS (1)
  1. BEXTRA [Suspect]
     Indication: LIMB INJURY
     Dosage: 20 MG, QD, ORAL
     Route: 048
     Dates: start: 20040917

REACTIONS (3)
  - DIZZINESS [None]
  - EPISTAXIS [None]
  - FALL [None]
